FAERS Safety Report 16268292 (Version 2)
Quarter: 2019Q3

REPORT INFORMATION
  Report Type: Spontaneous
  Country: US (occurrence: US)
  Receive Date: 20190503
  Receipt Date: 20190719
  Transmission Date: 20191004
  Serious: No
  Sender: FDA-Public Use
  Company Number: US-ASTRAZENECA-2019SE65303

PATIENT
  Sex: Female

DRUGS (1)
  1. SYMBICORT [Suspect]
     Active Substance: BUDESONIDE\FORMOTEROL FUMARATE DIHYDRATE
     Dosage: 80MCG/4.5MCG, 2 PUFFS TWICE A DAY
     Route: 055

REACTIONS (4)
  - Cerebral cyst [Unknown]
  - Memory impairment [Unknown]
  - Device issue [Unknown]
  - Device failure [Unknown]
